FAERS Safety Report 21047185 (Version 1)
Quarter: 2022Q3

REPORT INFORMATION
  Report Type: Report from Study
  Country: US (occurrence: US)
  Receive Date: 20220706
  Receipt Date: 20220706
  Transmission Date: 20221027
  Serious: Yes (Other)
  Sender: FDA-Public Use
  Company Number: US-BRISTOL-MYERS SQUIBB COMPANY-2022-063151

PATIENT
  Age: 57 Year
  Sex: Male
  Weight: 149.69 kg

DRUGS (6)
  1. REVLIMID [Suspect]
     Active Substance: LENALIDOMIDE
     Indication: Plasma cell myeloma
     Route: 048
     Dates: start: 20201103
  2. ELIQUIS [Concomitant]
     Active Substance: APIXABAN
  3. SYNTHROID [Concomitant]
     Active Substance: LEVOTHYROXINE SODIUM
  4. OXYCODONE [Concomitant]
     Active Substance: OXYCODONE
  5. ACYCLOVIR [Concomitant]
     Active Substance: ACYCLOVIR
  6. ERGOCALCIFEROL [Concomitant]
     Active Substance: ERGOCALCIFEROL

REACTIONS (1)
  - Cholecystitis [Unknown]
